FAERS Safety Report 23127652 (Version 1)
Quarter: 2023Q4

REPORT INFORMATION
  Report Type: Spontaneous
  Country: US (occurrence: US)
  Receive Date: 20231031
  Receipt Date: 20231031
  Transmission Date: 20240109
  Serious: No
  Sender: FDA-Public Use
  Company Number: US-SA-SAC20231026001060

PATIENT
  Sex: Female

DRUGS (9)
  1. DUPIXENT [Suspect]
     Active Substance: DUPILUMAB
     Indication: Neurodermatitis
     Dosage: 300 MG, QOW
     Route: 058
  2. BUSPIRONE [Concomitant]
     Active Substance: BUSPIRONE HYDROCHLORIDE
  3. ESCITALOPRAM [Concomitant]
     Active Substance: ESCITALOPRAM OXALATE
  4. HYDROXYZINE [Concomitant]
     Active Substance: HYDROXYZINE HYDROCHLORIDE
  5. KETOROLAC [Concomitant]
     Active Substance: KETOROLAC TROMETHAMINE
  6. MELOXICAM [Concomitant]
     Active Substance: MELOXICAM
  7. OFLOXACIN [Concomitant]
     Active Substance: OFLOXACIN
  8. OLANZAPINE [Concomitant]
     Active Substance: OLANZAPINE
  9. BETAMETASON [BETAMETHASONE] [Concomitant]

REACTIONS (2)
  - Myalgia [Not Recovered/Not Resolved]
  - Arthralgia [Not Recovered/Not Resolved]
